FAERS Safety Report 6731310-0 (Version None)
Quarter: 2010Q2

REPORT INFORMATION
  Report Type: 
  Country: None (occurrence: None)
  Receive Date: 20100518
  Receipt Date: 20100511
  Transmission Date: 20101027
  Serious: Yes (Hospitalization)
  Sender: FDA-Public Use
  Company Number: JP-MERCK-1003USA02320

PATIENT
  Age: 4 Year
  Sex: Male

DRUGS (8)
  1. SINGULAIR [Suspect]
     Indication: ASTHMA
     Route: 048
     Dates: start: 20071011, end: 20100221
  2. MUCOSIL-10 [Suspect]
     Indication: UPPER RESPIRATORY TRACT INFECTION
     Route: 048
     Dates: start: 20100210, end: 20100222
  3. PULMICORT [Suspect]
     Indication: ASTHMA
     Route: 065
     Dates: start: 20071031
  4. MEPTIN [Suspect]
     Indication: ASTHMA
     Route: 048
     Dates: start: 20100220, end: 20100222
  5. KENALOG [Concomitant]
     Route: 061
     Dates: start: 20100210
  6. ASVERIN [Suspect]
     Indication: UPPER RESPIRATORY TRACT INFECTION
     Route: 048
     Dates: start: 20100210, end: 20100222
  7. MUCODYNE [Suspect]
     Indication: UPPER RESPIRATORY TRACT INFECTION
     Route: 048
     Dates: start: 20100210, end: 20100222
  8. LOCOID [Concomitant]
     Route: 061
     Dates: start: 20100210

REACTIONS (2)
  - HEPATIC FUNCTION ABNORMAL [None]
  - MUMPS [None]
